FAERS Safety Report 8257098-2 (Version None)
Quarter: 2012Q2

REPORT INFORMATION
  Report Type: 
  Country: None (occurrence: None)
  Receive Date: 20120403
  Receipt Date: 20120323
  Transmission Date: 20120825
  Serious: Yes (Other)
  Sender: FDA-Public Use
  Company Number: US-JNJFOC-20120312281

PATIENT
  Sex: Female
  Weight: 76.2 kg

DRUGS (5)
  1. REMICADE [Suspect]
     Indication: PSORIATIC ARTHROPATHY
     Route: 042
     Dates: start: 20100601
  2. METHOTREXATE [Concomitant]
     Indication: PSORIATIC ARTHROPATHY
     Route: 065
     Dates: start: 19990101
  3. SULFASALAZINE [Concomitant]
     Indication: PSORIATIC ARTHROPATHY
     Route: 048
     Dates: start: 20060101
  4. ADVAIR DISKUS 100/50 [Concomitant]
     Indication: ASTHMA
     Dosage: 100/50
     Route: 055
     Dates: start: 20040101
  5. OMEPRAZOLE [Concomitant]
     Indication: GASTROOESOPHAGEAL REFLUX DISEASE
     Route: 048

REACTIONS (9)
  - LABYRINTHITIS [None]
  - DIARRHOEA [None]
  - FATIGUE [None]
  - HYPERVENTILATION [None]
  - SEDATION [None]
  - ANXIETY [None]
  - PHOTOPHOBIA [None]
  - THIRST [None]
  - HEADACHE [None]
